FAERS Safety Report 4351352-2 (Version None)
Quarter: 2004Q2

REPORT INFORMATION
  Report Type: 
  Country: None (occurrence: None)
  Receive Date: 20040503
  Receipt Date: 20040421
  Transmission Date: 20050107
  Serious: Yes (Hospitalization, Disabling)
  Sender: FDA-Public Use
  Company Number: GB-BRISTOL-MYERS SQUIBB COMPANY-12566667

PATIENT
  Age: 58 Year
  Sex: Female

DRUGS (5)
  1. CARBOPLATIN [Suspect]
     Indication: OVARIAN CANCER
     Route: 042
     Dates: start: 20021104, end: 20021104
  2. PACLITAXEL [Suspect]
     Indication: OVARIAN CANCER
     Route: 042
     Dates: start: 20021104, end: 20021104
  3. INTERFERON GAMMA [Suspect]
     Indication: OVARIAN CANCER
     Route: 058
     Dates: start: 20021104, end: 20021104
  4. DOMPERIDONE [Concomitant]
     Dates: start: 20021104
  5. ACETAMINOPHEN [Concomitant]
     Dates: start: 20021104

REACTIONS (1)
  - DIZZINESS [None]
